FAERS Safety Report 6211239-7 (Version None)
Quarter: 2009Q2

REPORT INFORMATION
  Report Type: 
  Country: None (occurrence: None)
  Receive Date: 20090528
  Receipt Date: 20090513
  Transmission Date: 20091009
  Serious: Yes (Other)
  Sender: FDA-Public Use
  Company Number: 2009S1008520

PATIENT
  Sex: Female

DRUGS (9)
  1. ALENDRONIC ACID (ALENDRONIC ACID) (70 MG) [Suspect]
     Indication: OSTEOPOROSIS
     Dosage: 70 MG
     Dates: start: 20071201, end: 20081101
  2. ARNICA [Concomitant]
  3. CALCIUM [Concomitant]
  4. ANAMIRTA COCCULUS [Concomitant]
  5. ACTION COLD + FLU [Concomitant]
  6. MULTI-VITAMIN [Concomitant]
  7. LOVAZA [Concomitant]
  8. VITAMIN D [Concomitant]
  9. ZINC [Concomitant]

REACTIONS (6)
  - ALTERED VISUAL DEPTH PERCEPTION [None]
  - EYE PAIN [None]
  - HEADACHE [None]
  - NIGHT BLINDNESS [None]
  - PHOTOPHOBIA [None]
  - VISION BLURRED [None]
